FAERS Safety Report 23493013 (Version 1)
Quarter: 2024Q1

REPORT INFORMATION
  Report Type: Spontaneous
  Country: FR (occurrence: FR)
  Receive Date: 20240207
  Receipt Date: 20240207
  Transmission Date: 20240410
  Serious: Yes (Death, Other)
  Sender: FDA-Public Use
  Company Number: FR-AMICUS THERAPEUTICS, INC.-AMI_2887

PATIENT

DRUGS (1)
  1. GALAFOLD [Suspect]
     Active Substance: MIGALASTAT HYDROCHLORIDE
     Indication: Fabry^s disease
     Dosage: UNK
     Route: 048

REACTIONS (4)
  - Septic shock [Fatal]
  - Haemorrhage intracranial [Fatal]
  - Cardiogenic shock [Unknown]
  - Arrhythmic storm [Unknown]
